FAERS Safety Report 11857688 (Version 1)
Quarter: 2015Q4

REPORT INFORMATION
  Report Type: Spontaneous
  Country: US (occurrence: None)
  Receive Date: 20151221
  Receipt Date: 20151221
  Transmission Date: 20160305
  Serious: No
  Sender: FDA-Public Use
  Company Number: None

PATIENT
  Age: 11 Month
  Sex: Female
  Weight: 9.98 kg

DRUGS (7)
  1. COLOSTRUM HUMAN [Concomitant]
     Active Substance: HUMAN COLOSTRUM
  2. PROBIOTIC [Concomitant]
     Active Substance: PROBIOTICS NOS
  3. MULTI-VITAMIN [Concomitant]
     Active Substance: .ALPHA.-TOCOPHEROL ACETATE, DL-\ASCORBIC ACID\CYANOCOBALAMIN\FLUORIDE ION\FOLIC ACID\NIACIN\PYRIDOXINE\RIBOFLAVIN\THIAMINE\VITAMIN A\VITAMIN D
  4. DHA WITH VITAMIN D3 [Concomitant]
  5. TRACE MINERALS [Concomitant]
  6. AMOX-CLAV 600 MG/42.9 MG PER 5ML SANDOZ [Suspect]
     Active Substance: AMOXICILLIN\CLAVULANATE POTASSIUM
     Indication: BACTERIAL INFECTION
     Route: 048
  7. COD LIVER OIL WITH BUTTER OIL [Concomitant]

REACTIONS (4)
  - Diarrhoea [None]
  - Insomnia [None]
  - Frequent bowel movements [None]
  - Abdominal discomfort [None]

NARRATIVE: CASE EVENT DATE: 20151216
